FAERS Safety Report 9120425 (Version 1)
Quarter: 2013Q1

REPORT INFORMATION
  Report Type: Spontaneous
  Country: US (occurrence: US)
  Receive Date: 20130226
  Receipt Date: 20130226
  Transmission Date: 20140127
  Serious: No
  Sender: FDA-Public Use
  Company Number: US-ASTRAZENECA-2013SE05452

PATIENT
  Sex: Female

DRUGS (1)
  1. NEXIUM [Suspect]
     Indication: GASTROOESOPHAGEAL REFLUX DISEASE
     Dosage: FREQUENCY, BID
     Route: 048
     Dates: start: 2006, end: 2010

REACTIONS (4)
  - Eating disorder [Unknown]
  - Goitre [Unknown]
  - Weight decreased [Not Recovered/Not Resolved]
  - Off label use [Unknown]
